FAERS Safety Report 24652558 (Version 1)
Quarter: 2024Q4

REPORT INFORMATION
  Report Type: Spontaneous
  Country: GB (occurrence: GB)
  Receive Date: 20241122
  Receipt Date: 20241122
  Transmission Date: 20250114
  Serious: Yes (Other)
  Sender: ACCORD
  Company Number: None

PATIENT
  Age: 47 Year
  Sex: Male
  Weight: 90 kg

DRUGS (3)
  1. ALLOPURINOL [Suspect]
     Active Substance: ALLOPURINOL
     Indication: Ill-defined disorder
     Dosage: STRENGTH: 300 MG
     Dates: start: 20241105
  2. CLOTRIMAZOLE [Concomitant]
     Active Substance: CLOTRIMAZOLE
     Indication: Ill-defined disorder
     Dosage: APPLY TO THE AFFECTED AREA(S) TWO OR THREE TIME
     Dates: start: 20240906, end: 20240913
  3. FEBUXOSTAT [Concomitant]
     Active Substance: FEBUXOSTAT
     Indication: Ill-defined disorder
     Dosage: TAKE ONE TABLET EACH DAY TO HELP PREVENT GOUT
     Dates: start: 20240415

REACTIONS (2)
  - Rash erythematous [Recovered/Resolved]
  - Visual acuity reduced [Recovered/Resolved]

NARRATIVE: CASE EVENT DATE: 20241105
